FAERS Safety Report 11309562 (Version 1)
Quarter: 2015Q3

REPORT INFORMATION
  Report Type: Spontaneous
  Country: ES (occurrence: ES)
  Receive Date: 20150724
  Receipt Date: 20150724
  Transmission Date: 20151125
  Serious: Yes (Other)
  Sender: FDA-Public Use
  Company Number: ES-SA-2015SA106059

PATIENT
  Age: 62 Year
  Sex: Female
  Weight: 73 kg

DRUGS (6)
  1. MULTAQ [Suspect]
     Active Substance: DRONEDARONE
     Indication: ATRIAL FIBRILLATION
     Dosage: 400- 200
     Route: 048
     Dates: start: 20150209, end: 20150619
  2. ROSUVASTATIN [Concomitant]
     Active Substance: ROSUVASTATIN
  3. XARELTO [Concomitant]
     Active Substance: RIVAROXABAN
  4. MULTAQ [Suspect]
     Active Substance: DRONEDARONE
     Indication: BREAST DISORDER
     Dosage: 400- 200
     Route: 048
     Dates: start: 20150209, end: 20150619
  5. EUTIROX [Concomitant]
     Active Substance: LEVOTHYROXINE SODIUM
  6. OMEPRAZOLE. [Concomitant]
     Active Substance: OMEPRAZOLE

REACTIONS (1)
  - Neuropathy peripheral [Recovering/Resolving]

NARRATIVE: CASE EVENT DATE: 20150319
